FAERS Safety Report 9472303 (Version 1)
Quarter: 2013Q3

REPORT INFORMATION
  Report Type: Spontaneous
  Country: AU (occurrence: AU)
  Receive Date: 20130823
  Receipt Date: 20130823
  Transmission Date: 20140515
  Serious: Yes (Other)
  Sender: FDA-Public Use
  Company Number: AU-009507513-1308AUS007916

PATIENT
  Age: 26 Year
  Sex: Female

DRUGS (1)
  1. IMPLANON NXT [Suspect]
     Dosage: DOSE UNSPECIFIED
     Route: 059
     Dates: start: 20130215

REACTIONS (2)
  - Oestradiol decreased [Recovering/Resolving]
  - Flushing [Recovering/Resolving]
